FAERS Safety Report 7153009-1 (Version None)
Quarter: 2010Q4

REPORT INFORMATION
  Report Type: 
  Country: None (occurrence: None)
  Receive Date: 20101130
  Receipt Date: 20101115
  Transmission Date: 20110411
  Serious: Yes (Death)
  Sender: FDA-Public Use
  Company Number: 753929

PATIENT
  Age: 78 Year
  Sex: Male

DRUGS (86)
  1. LEVOPHED [Suspect]
     Indication: BLOOD PRESSURE MANAGEMENT
     Dates: end: 20080224
  2. HEPARIN SODIUM [Suspect]
     Indication: HAEMODIALYSIS
     Dosage: SEE IMAGE
     Dates: start: 20071106, end: 20071106
  3. HEPARIN SODIUM [Suspect]
     Indication: HAEMODIALYSIS
     Dosage: SEE IMAGE
     Dates: start: 20071120, end: 20071123
  4. HEPARIN SODIUM [Suspect]
     Indication: HAEMODIALYSIS
     Dosage: SEE IMAGE
     Dates: start: 20071126, end: 20071126
  5. HEPARIN SODIUM [Suspect]
     Indication: HAEMODIALYSIS
     Dosage: SEE IMAGE
     Dates: start: 20071126, end: 20071126
  6. HEPARIN SODIUM [Suspect]
     Indication: HAEMODIALYSIS
     Dosage: SEE IMAGE
     Dates: start: 20071204, end: 20071205
  7. HEPARIN SODIUM [Suspect]
     Indication: HAEMODIALYSIS
     Dosage: SEE IMAGE
     Dates: start: 20071208, end: 20071208
  8. HEPARIN SODIUM [Suspect]
     Indication: HAEMODIALYSIS
     Dosage: SEE IMAGE
     Dates: start: 20071210, end: 20071210
  9. HEPARIN SODIUM [Suspect]
     Indication: HAEMODIALYSIS
     Dosage: SEE IMAGE
     Dates: start: 20071210, end: 20071210
  10. HEPARIN SODIUM [Suspect]
     Indication: HAEMODIALYSIS
     Dosage: SEE IMAGE
     Dates: start: 20071211, end: 20071211
  11. HEPARIN SODIUM [Suspect]
     Indication: HAEMODIALYSIS
     Dosage: SEE IMAGE
     Dates: start: 20071231, end: 20071231
  12. HEPARIN SODIUM [Suspect]
     Indication: HAEMODIALYSIS
     Dosage: SEE IMAGE
     Dates: start: 20080106, end: 20080106
  13. HEPARIN SODIUM [Suspect]
     Indication: HAEMODIALYSIS
     Dosage: SEE IMAGE
     Dates: start: 20071106
  14. HEPARIN SODIUM [Suspect]
     Indication: HAEMODIALYSIS
     Dosage: SEE IMAGE
     Dates: start: 20071210
  15. COUMADIN [Concomitant]
  16. ACTIVASE [Concomitant]
  17. ALBUMIN (HUMAN) [Concomitant]
  18. (HAEMODIALYTICS AND HAEMOFILTRATES) [Concomitant]
  19. ACTIVASE [Concomitant]
  20. UNASYN [Concomitant]
  21. CEFEPIME HYDROCHLORIDE [Concomitant]
  22. CEFTAZIDIME [Concomitant]
  23. (CORTOSYN) [Concomitant]
  24. DEXTROSE [Concomitant]
  25. DIFLUCAN [Concomitant]
  26. DIGOXIN INJ., USP, 250 MCG (0.25MG) /ML CARPUJECT[] (MCPHERSON) (DIGOX [Concomitant]
  27. FENTANYL CITRATE [Concomitant]
  28. FRESH FROZEN PLASMA [Concomitant]
  29. GENTAMICIN SULFATE [Concomitant]
  30. POTASSIUM CHLORIDE [Concomitant]
  31. OXACILLIN [Concomitant]
  32. MORPHINE SULFATE [Concomitant]
  33. SOLU-CORTEF [Concomitant]
  34. LEVAQUIN [Concomitant]
  35. LINEZOLID [Concomitant]
  36. MAGNESIUM SULFATE [Concomitant]
  37. SOLU-MEDROL [Concomitant]
  38. METRONIDAZOLE INJ. IN FLEXIBLE CONT. (METRONIDAZOLE) [Concomitant]
  39. MIDAZOLAM HYDROCHLORIDE INJECTION (MIDAZOLAM) [Concomitant]
  40. MIDODRINE HYDROCHLORIDE [Concomitant]
  41. PROTONIX [Concomitant]
  42. LACTATED RINGER'S INJ PLASTIC (HOSPIRA) (LACTATED RINGERS) [Concomitant]
  43. (VASOPRESSIN) [Concomitant]
  44. SODIUM CHLORIDE INJ USP 0.9% (SODIUM CHLORIDE) [Concomitant]
  45. VITAMIN K1, 2MG/ML AMPUL (VITAMIN K) [Concomitant]
  46. ZOSYN [Concomitant]
  47. PROPOFOL [Concomitant]
  48. RED BLOOD CELLS [Concomitant]
  49. SODIUM BICARB INJ USP 8.4% (SODIUM HYDROGEN CARBONATE) [Concomitant]
  50. VANCOMYCIN HYDROCHLORIDE [Concomitant]
  51. ASPIRIN [Concomitant]
  52. (FOLBEE PLUS) [Concomitant]
  53. LISINOPRIL [Concomitant]
  54. METOPROLOL TARTRATE INJECTION, USP, 1 MG/ML, 5 ML VIALS (METOPROLOL) [Concomitant]
  55. LOVENOX [Concomitant]
  56. (OCUVITE /01053801/) [Concomitant]
  57. PHOSLO [Concomitant]
  58. (THERAGRAN /00554301/) [Concomitant]
  59. ACETAMINOPHEN [Concomitant]
  60. BENTYL [Concomitant]
  61. DULCOLAX [Concomitant]
  62. CHLORHEXIDINE GLUCONATE [Concomitant]
  63. (COLACE) [Concomitant]
  64. (DARBEPOETIN ALFA) [Concomitant]
  65. (PROCRIT /00909301/) [Concomitant]
  66. FAMOTIDINE INJ, 10 MG/ML (MCPHERSON) (PRESERVATIVE FREE), SDF (FAMOTID [Concomitant]
  67. (FILGRASTIM) [Concomitant]
  68. (FLORASTOR) [Concomitant]
  69. FLORINEF [Concomitant]
  70. (ANUSOL /00117301/) [Concomitant]
  71. (METAMUCIL /00029101/) [Concomitant]
  72. REGLAN [Concomitant]
  73. NOVOLIN R [Concomitant]
  74. ONDANSETRON [Concomitant]
  75. PERCOCET [Concomitant]
  76. AREDIA [Concomitant]
  77. RISPERDAL [Concomitant]
  78. RITALIN [Concomitant]
  79. SENSIPAR [Concomitant]
  80. (NEUTRA-PHOS /00555301/) [Concomitant]
  81. (XENADERM) [Concomitant]
  82. (IRON) [Concomitant]
  83. (NOVEL ERYTHROPOIESIS STIMULATING PROTEIN) [Concomitant]
  84. (NEO-SYNEPHRINE /00070002/) [Concomitant]
  85. (DIATRIZOIC ACID) [Concomitant]
  86. BACTRIM [Concomitant]

REACTIONS (22)
  - ATRIAL FIBRILLATION [None]
  - CARDIAC FAILURE CONGESTIVE [None]
  - CLOSTRIDIUM DIFFICILE COLITIS [None]
  - COAGULOPATHY [None]
  - DEVICE RELATED INFECTION [None]
  - DRUG TOXICITY [None]
  - DYSPNOEA [None]
  - GENERAL PHYSICAL HEALTH DETERIORATION [None]
  - HAEMATOCRIT DECREASED [None]
  - HAEMOGLOBIN DECREASED [None]
  - HAEMOTHORAX [None]
  - HERPES ZOSTER [None]
  - HYPERSENSITIVITY [None]
  - HYPOTENSION [None]
  - MULTI-ORGAN FAILURE [None]
  - NECROSIS [None]
  - PLEURAL EFFUSION [None]
  - RENAL FAILURE [None]
  - RESPIRATORY FAILURE [None]
  - SEPSIS [None]
  - SKIN DISORDER [None]
  - THROMBOCYTOPENIA [None]
